FAERS Safety Report 5976558-8 (Version None)
Quarter: 2008Q4

REPORT INFORMATION
  Report Type: 
  Country: None (occurrence: None)
  Receive Date: 20081125
  Receipt Date: 20081110
  Transmission Date: 20090506
  Serious: Yes (Other)
  Sender: FDA-Public Use
  Company Number: 2008S1018491

PATIENT
  Age: 51 Year
  Sex: Male
  Weight: 171.0061 kg

DRUGS (10)
  1. BYSTOLIC [Suspect]
     Indication: HYPERTENSION
     Dosage: 10 MG;TWICE A DAY;ORAL
     Route: 048
     Dates: start: 20080901
  2. OXYCONTIN [Concomitant]
  3. . [Concomitant]
  4. METHADONE HCL [Concomitant]
  5. AMBIEN [Concomitant]
  6. AMITRIPTYLINE HCL [Concomitant]
  7. VITAMINS [Concomitant]
  8. FOLIC ACID [Concomitant]
  9. LANTUS [Concomitant]
  10. HUMALOG [Concomitant]

REACTIONS (12)
  - BACK PAIN [None]
  - CHEST DISCOMFORT [None]
  - CHEST PAIN [None]
  - FALL [None]
  - HEADACHE [None]
  - INFLUENZA LIKE ILLNESS [None]
  - INSOMNIA [None]
  - MALAISE [None]
  - MUSCLE SPASMS [None]
  - NO THERAPEUTIC RESPONSE [None]
  - OROPHARYNGEAL PAIN [None]
  - PAIN IN EXTREMITY [None]
